FAERS Safety Report 6719210-3 (Version None)
Quarter: 2010Q2

REPORT INFORMATION
  Report Type: 
  Country: None (occurrence: None)
  Receive Date: 20100511
  Receipt Date: 20100428
  Transmission Date: 20101027
  Serious: Yes (Life-Threatening)
  Sender: FDA-Public Use
  Company Number: JP-ASTRAZENECA-2010SE19797

PATIENT
  Age: 69 Year
  Sex: Male

DRUGS (12)
  1. SEROQUEL [Suspect]
     Route: 048
     Dates: start: 20100403, end: 20100405
  2. PANSPORIN [Suspect]
     Route: 041
     Dates: start: 20100402, end: 20100405
  3. SOLANAX [Concomitant]
     Route: 048
     Dates: start: 20080101, end: 20100405
  4. ANAFRANIL [Concomitant]
     Route: 048
     Dates: start: 20100201, end: 20100405
  5. TOLEDOMIN [Concomitant]
     Route: 048
     Dates: start: 20040101, end: 20100405
  6. HALCION [Concomitant]
     Route: 048
     Dates: start: 20040101, end: 20100405
  7. LENDORMIN [Concomitant]
     Route: 048
     Dates: start: 20070101, end: 20100405
  8. DEPAS [Concomitant]
     Route: 048
     Dates: start: 20070101, end: 20100405
  9. CANDESARTAN CILEXETIL [Concomitant]
     Route: 048
     Dates: start: 20040101, end: 20100405
  10. NORVASC [Concomitant]
     Route: 048
     Dates: start: 20040101, end: 20100405
  11. AMARYL [Concomitant]
     Route: 048
     Dates: start: 20090101, end: 20100405
  12. ACTOS [Concomitant]
     Route: 048
     Dates: start: 20090101, end: 20100405

REACTIONS (1)
  - AGRANULOCYTOSIS [None]
